FAERS Safety Report 7472129-5 (Version None)
Quarter: 2011Q2

REPORT INFORMATION
  Report Type: 
  Country: None (occurrence: None)
  Receive Date: 20110511
  Receipt Date: 20110114
  Transmission Date: 20111010
  Serious: No
  Sender: FDA-Public Use
  Company Number: A0906687A

PATIENT
  Age: 58 Year
  Sex: Female
  Weight: 52.3 kg

DRUGS (1)
  1. TYKERB [Suspect]
     Indication: BREAST CANCER
     Dosage: 1250MG PER DAY
     Route: 048
     Dates: start: 20100601

REACTIONS (2)
  - SKIN DISCOLOURATION [None]
  - SKIN HYPERPIGMENTATION [None]
